FAERS Safety Report 11047311 (Version 2)
Quarter: 2015Q3

REPORT INFORMATION
  Report Type: Spontaneous
  Country: US (occurrence: US)
  Receive Date: 20150420
  Receipt Date: 20150810
  Transmission Date: 20151125
  Serious: No
  Sender: FDA-Public Use
  Company Number: US-009507513-1504USA017805

PATIENT
  Sex: Male

DRUGS (2)
  1. PROPECIA [Suspect]
     Active Substance: FINASTERIDE
     Indication: ALOPECIA
     Dosage: 1 MG, UNKNOWN
     Route: 048
     Dates: start: 20030312
  2. FINASTERIDE. [Suspect]
     Active Substance: FINASTERIDE
     Indication: ALOPECIA
     Dosage: 1 MG, UNKNOWN
     Route: 048
     Dates: end: 2009

REACTIONS (3)
  - Loss of libido [Unknown]
  - Sexual dysfunction [Not Recovered/Not Resolved]
  - Erectile dysfunction [Not Recovered/Not Resolved]

NARRATIVE: CASE EVENT DATE: 2004
